FAERS Safety Report 6719106-7 (Version None)
Quarter: 2010Q2

REPORT INFORMATION
  Report Type: 
  Country: None (occurrence: None)
  Receive Date: 20100507
  Receipt Date: 20100429
  Transmission Date: 20101027
  Serious: Yes (Other)
  Sender: FDA-Public Use
  Company Number: 20108612

PATIENT
  Age: 10 Year
  Sex: Female

DRUGS (1)
  1. LIORESAL [Suspect]
     Indication: MUSCLE SPASTICITY
     Dosage: MCG, DAILY, INTRATHECAL

REACTIONS (20)
  - ABDOMINAL PAIN LOWER [None]
  - ASTHENIA [None]
  - BACK PAIN [None]
  - CONSTIPATION [None]
  - EYE ROLLING [None]
  - HEADACHE [None]
  - HYPOAESTHESIA [None]
  - HYPOTONIA [None]
  - IMPLANT SITE EFFUSION [None]
  - INCONTINENCE [None]
  - MUSCLE SPASMS [None]
  - MUSCLE TIGHTNESS [None]
  - PAIN IN EXTREMITY [None]
  - POOR QUALITY SLEEP [None]
  - POSTURE ABNORMAL [None]
  - SCOLIOSIS [None]
  - SENSORY DISTURBANCE [None]
  - SOMNOLENCE [None]
  - UNRESPONSIVE TO STIMULI [None]
  - WALKING AID USER [None]
